FAERS Safety Report 6346305-9 (Version None)
Quarter: 2009Q3

REPORT INFORMATION
  Report Type: 
  Country: None (occurrence: None)
  Receive Date: 20090909
  Receipt Date: 20090908
  Transmission Date: 20100115
  Serious: Yes (Hospitalization)
  Sender: FDA-Public Use
  Company Number: US-TEVA-206911USA

PATIENT

DRUGS (16)
  1. PREDNISOLONE [Suspect]
     Indication: LIVER TRANSPLANT
     Route: 048
     Dates: start: 20090623
  2. BELATACEPT [Suspect]
     Indication: LIVER TRANSPLANT
     Route: 042
     Dates: start: 20090528
  3. MYCOPHENOLATE MOFETIL [Suspect]
     Indication: LIVER TRANSPLANT
     Route: 048
     Dates: start: 20090528
  4. BASILIXIMAB [Suspect]
     Indication: LIVER TRANSPLANT
     Route: 042
     Dates: start: 20090528, end: 20090601
  5. FENOFIBRATE [Concomitant]
     Dates: start: 20040101
  6. PANTOPRAZOLE SODIUM [Concomitant]
     Dates: start: 20060101
  7. ASPIRIN [Concomitant]
     Dates: start: 20090104
  8. ATENOLOL [Concomitant]
     Dates: start: 20090601
  9. ISOPHANE INSULIN [Concomitant]
     Dates: start: 20090529
  10. INSULIN [Concomitant]
     Dosage: 70/30
     Dates: start: 20090603
  11. MULTI-VITAMIN [Concomitant]
     Dates: start: 20090606
  12. OSCAL [Concomitant]
     Dates: start: 20090606
  13. AMLODIPINE [Concomitant]
     Dates: start: 20090601
  14. TEMAZEPAM [Concomitant]
     Dates: start: 20090602
  15. BACTRIM [Concomitant]
     Dates: start: 20090529
  16. VICODIN [Concomitant]
     Dates: start: 20090605

REACTIONS (2)
  - LOBAR PNEUMONIA [None]
  - PYREXIA [None]
